FAERS Safety Report 11209118 (Version 1)
Quarter: 2015Q2

REPORT INFORMATION
  Report Type: Spontaneous
  Country: ES (occurrence: ES)
  Receive Date: 20150622
  Receipt Date: 20150622
  Transmission Date: 20150821
  Serious: Yes (Hospitalization)
  Sender: FDA-Public Use
  Company Number: PHHY2015ES073477

PATIENT
  Age: 45 Year
  Sex: Male

DRUGS (1)
  1. METHOTREXATE [Suspect]
     Active Substance: METHOTREXATE
     Indication: PSORIASIS
     Dosage: 10 MG, QD
     Route: 065

REACTIONS (4)
  - Ulcer [Recovered/Resolved]
  - Toxicity to various agents [Recovered/Resolved]
  - Medication error [Unknown]
  - Bicytopenia [Recovered/Resolved]
